FAERS Safety Report 7070538-X (Version None)
Quarter: 2010Q4

REPORT INFORMATION
  Report Type: 
  Country: None (occurrence: None)
  Receive Date: 20101027
  Receipt Date: 20101027
  Transmission Date: 20110411
  Serious: Yes (Disabling)
  Sender: FDA-Public Use
  Company Number: None

PATIENT
  Age: 33 Year
  Sex: Male
  Weight: 102.0593 kg

DRUGS (2)
  1. INFANTS PAIN RELIEF 80MG/0.8MLS GOODSENSE [Suspect]
     Indication: PAIN
  2. INFANTS PAIN RELIEF 80MG/0.8MLS GOODSENSE [Suspect]
     Indication: PYREXIA

REACTIONS (1)
  - PRODUCT LABEL ISSUE [None]
